FAERS Safety Report 4990637-3 (Version None)
Quarter: 2006Q2

REPORT INFORMATION
  Report Type: 
  Country: None (occurrence: None)
  Receive Date: 20060427
  Receipt Date: 20060413
  Transmission Date: 20061013
  Serious: Yes (Other)
  Sender: FDA-Public Use
  Company Number: SUS1-2006-00436

PATIENT
  Age: 34 Year

DRUGS (1)
  1. ADDERALL XR 30 [Suspect]
     Dosage: 10 MG, DAILY
     Route: 048

REACTIONS (1)
  - CEREBROVASCULAR ACCIDENT [None]
